FAERS Safety Report 22048759 (Version 2)
Quarter: 2023Q2

REPORT INFORMATION
  Report Type: Spontaneous
  Country: US (occurrence: US)
  Receive Date: 20230301
  Receipt Date: 20230403
  Transmission Date: 20230722
  Serious: Yes (Hospitalization)
  Sender: FDA-Public Use
  Company Number: US-BAYER-2023A020792

PATIENT
  Age: 71 Year
  Sex: Male

DRUGS (6)
  1. MIRALAX [Suspect]
     Active Substance: POLYETHYLENE GLYCOL 3350
     Indication: Constipation
     Dosage: 1 DF, QD
     Dates: start: 20230109, end: 20230120
  2. MIRALAX [Suspect]
     Active Substance: POLYETHYLENE GLYCOL 3350
     Indication: Constipation
     Dosage: 1 DF, BID
     Dates: start: 20230124, end: 20230210
  3. ALBUTEROL [Concomitant]
     Active Substance: ALBUTEROL
     Dosage: 2 PUFF(S)
     Route: 055
  4. BISACODYL [Concomitant]
     Active Substance: BISACODYL
     Indication: Constipation
     Dosage: 2 DF, PRN
     Route: 048
  5. BREO ELLIPTA [Concomitant]
     Active Substance: FLUTICASONE FUROATE\VILANTEROL TRIFENATATE
     Dosage: 1 PUFF(S), QD
     Route: 055
  6. PLANTAGO MAJOR LEAF [Concomitant]
     Active Substance: PLANTAGO MAJOR LEAF
     Dosage: 5 DF, QID
     Route: 048

REACTIONS (9)
  - Abdominal pain upper [None]
  - Nausea [None]
  - Groin pain [Recovering/Resolving]
  - Dysuria [Recovering/Resolving]
  - Penile swelling [Recovering/Resolving]
  - Prostatic pain [Recovering/Resolving]
  - Product prescribing issue [None]
  - Inappropriate schedule of product administration [None]
  - Dysuria [None]

NARRATIVE: CASE EVENT DATE: 20230117
